FAERS Safety Report 9319007 (Version 2)
Quarter: 2013Q2

REPORT INFORMATION
  Report Type: Spontaneous
  Country: US (occurrence: None)
  Receive Date: 20130524
  Receipt Date: 20130531
  Transmission Date: 20140414
  Serious: Yes (Other)
  Sender: FDA-Public Use
  Company Number: JPI-P-031832

PATIENT
  Age: 33 Year
  Sex: Female

DRUGS (6)
  1. XYREM (500 MILLIGRAM/MILLILITERS, SOLUTION) (SODIUM OXYBATE) [Suspect]
     Indication: CATAPLEXY
     Route: 048
     Dates: start: 200312
  2. ESCITALOPRAM OXALATE [Concomitant]
  3. LEVOTHYROXINE SODIUM (LEVOXYL) [Concomitant]
  4. LIOTHYROXINE [Concomitant]
  5. AMPHETAMINE, DEXTROAMPHETAMINE MIXED SALTS [Concomitant]
  6. LEVONORGESTREL (MIRENA) [Concomitant]

REACTIONS (3)
  - Road traffic accident [None]
  - Neck injury [None]
  - Intervertebral disc injury [None]
